FAERS Safety Report 4369274-X (Version None)
Quarter: 2004Q2

REPORT INFORMATION
  Report Type: 
  Country: None (occurrence: None)
  Receive Date: 20040603
  Receipt Date: 20040402
  Transmission Date: 20050107
  Serious: Yes (Hospitalization)
  Sender: FDA-Public Use
  Company Number: US-GLAXOSMITHKLINE-A0506795A

PATIENT
  Age: 23 Year
  Sex: Female

DRUGS (1)
  1. AUGMENTIN XR [Suspect]
     Route: 048

REACTIONS (1)
  - RASH GENERALISED [None]
